FAERS Safety Report 6688971-4 (Version None)
Quarter: 2010Q2

REPORT INFORMATION
  Report Type: 
  Country: None (occurrence: None)
  Receive Date: 20100420
  Receipt Date: 20100408
  Transmission Date: 20101027
  Serious: Yes (Other)
  Sender: FDA-Public Use
  Company Number: US-PFIZER INC-2010045380

PATIENT
  Sex: Female
  Weight: 90.703 kg

DRUGS (6)
  1. LYRICA [Suspect]
     Indication: FIBROMYALGIA
     Dosage: 175 MG, 3X/DAY
     Route: 048
     Dates: start: 20100301
  2. LYRICA [Suspect]
     Dosage: 175 MG, 2X/DAY
     Route: 048
     Dates: end: 20100407
  3. TRAZODONE [Concomitant]
     Indication: SLEEP DISORDER
     Dosage: UNK
     Dates: start: 20090101
  4. CYMBALTA [Concomitant]
     Indication: DEPRESSION
     Dosage: UNK
     Dates: start: 20090101
  5. LEXAPRO [Concomitant]
     Dosage: UNK
     Dates: start: 20090101
  6. LORCET-HD [Concomitant]
     Dosage: UNK
     Dates: start: 20090101

REACTIONS (5)
  - ARTHRALGIA [None]
  - GAIT DISTURBANCE [None]
  - JOINT SWELLING [None]
  - MYALGIA [None]
  - OEDEMA PERIPHERAL [None]
